FAERS Safety Report 8273880-X (Version None)
Quarter: 2012Q2

REPORT INFORMATION
  Report Type: 
  Country: None (occurrence: None)
  Receive Date: 20120411
  Receipt Date: 20120402
  Transmission Date: 20120825
  Serious: Yes (Other)
  Sender: FDA-Public Use
  Company Number: US-ASTRAZENECA-2012SE21606

PATIENT
  Age: 78 Year
  Sex: Male
  Weight: 75.7 kg

DRUGS (7)
  1. SPIRIVA [Concomitant]
  2. ASPIRIN [Concomitant]
  3. COLACE [Concomitant]
     Indication: LAXATIVE SUPPORTIVE CARE
  4. METOPROLOL TARTRATE [Concomitant]
  5. NEXIUM [Suspect]
     Route: 048
  6. SYMBICORT [Suspect]
     Indication: PNEUMONIA
     Dosage: 160/4.5 MCGS TWO PUFFS TWICE A DAY
     Route: 055
     Dates: start: 20120101
  7. SYMBICORT [Suspect]
     Dosage: 160/4.5 MCGS ONCE DAILY
     Route: 055

REACTIONS (4)
  - DYSPNOEA [None]
  - AORTIC ANEURYSM [None]
  - OFF LABEL USE [None]
  - PNEUMONIA [None]
